FAERS Safety Report 4651401-8 (Version None)
Quarter: 2005Q3

REPORT INFORMATION
  Report Type: 
  Country: None (occurrence: None)
  Receive Date: 20050425
  Receipt Date: 20050411
  Transmission Date: 20060218
  Serious: Yes (Other)
  Sender: FDA-Public Use
  Company Number: 2005-00563

PATIENT
  Age: 44 Year
  Sex: Female
  Weight: 75 kg

DRUGS (1)
  1. TUBERSOL [Suspect]
     Indication: TUBERCULIN TEST
     Dosage: ROUTINE TEST, I.D.
     Route: 062
     Dates: start: 20050309

REACTIONS (3)
  - HYPERSENSITIVITY [None]
  - INJECTION SITE ERYTHEMA [None]
  - SELF-MEDICATION [None]
